FAERS Safety Report 22630017 (Version 1)
Quarter: 2023Q2

REPORT INFORMATION
  Report Type: Spontaneous
  Country: CA (occurrence: CA)
  Receive Date: 20230622
  Receipt Date: 20230622
  Transmission Date: 20230722
  Serious: Yes (Hospitalization, Other)
  Sender: FDA-Public Use
  Company Number: CA-SAMSUNG BIOEPIS-SB-2023-16372

PATIENT
  Age: 25 Year
  Sex: Male
  Weight: 52 kg

DRUGS (3)
  1. HADLIMA [Suspect]
     Active Substance: ADALIMUMAB-BWWD
     Indication: Crohn^s disease
     Dosage: UNKNOWN
     Route: 065
     Dates: end: 202104
  2. ENTOCORT [Concomitant]
     Active Substance: BUDESONIDE
     Indication: Product used for unknown indication
     Dosage: UNKNOWN
     Route: 065
     Dates: start: 2008
  3. CORTISONE [Concomitant]
     Active Substance: CORTISONE
     Indication: Product used for unknown indication
     Dosage: UNKNOWN
     Route: 048

REACTIONS (2)
  - Crohn^s disease [Unknown]
  - Drug ineffective [Unknown]

NARRATIVE: CASE EVENT DATE: 20230525
